FAERS Safety Report 10588060 (Version 2)
Quarter: 2014Q4

REPORT INFORMATION
  Report Type: Spontaneous
  Country: BR (occurrence: BR)
  Receive Date: 20141117
  Receipt Date: 20141117
  Transmission Date: 20150529
  Serious: Yes (Other)
  Sender: FDA-Public Use
  Company Number: BR-SA-2014SA040411

PATIENT
  Age: 28 Year
  Sex: Female
  Weight: 50 kg

DRUGS (4)
  1. FOLIC ACID. [Concomitant]
     Active Substance: FOLIC ACID
     Dates: start: 201402
  2. CLEXANE [Suspect]
     Active Substance: ENOXAPARIN SODIUM
     Indication: THROMBOSIS PROPHYLAXIS
     Dosage: REDUCED DOSE
     Route: 065
     Dates: end: 20140911
  3. AAS [Suspect]
     Active Substance: ASPIRIN
     Route: 065
  4. CLEXANE [Suspect]
     Active Substance: ENOXAPARIN SODIUM
     Indication: THROMBOSIS PROPHYLAXIS
     Route: 065
     Dates: start: 201402, end: 201403

REACTIONS (3)
  - Haemorrhage [Recovered/Resolved]
  - Exposure during pregnancy [Unknown]
  - Cervix disorder [Unknown]

NARRATIVE: CASE EVENT DATE: 201402
